FAERS Safety Report 5328029-X (Version None)
Quarter: 2007Q2

REPORT INFORMATION
  Report Type: 
  Country: None (occurrence: None)
  Receive Date: 20070517
  Receipt Date: 20070510
  Transmission Date: 20071010
  Serious: Yes (Life-Threatening, Disabling)
  Sender: FDA-Public Use
  Company Number: GB-ABBOTT-07P-167-0367950-00

PATIENT
  Sex: Male
  Weight: 80 kg

DRUGS (1)
  1. TRANDOLAPRIL [Suspect]
     Indication: HYPERTENSION
     Dates: start: 20070322, end: 20070412

REACTIONS (1)
  - ATRIAL FIBRILLATION [None]
